FAERS Safety Report 5262523-5 (Version None)
Quarter: 2007Q1

REPORT INFORMATION
  Report Type: 
  Country: None (occurrence: None)
  Receive Date: 20070312
  Receipt Date: 20070226
  Transmission Date: 20070707
  Serious: Yes (Other)
  Sender: FDA-Public Use
  Company Number: PHHO2007GB01289

PATIENT
  Age: 75 Year
  Sex: Male

DRUGS (6)
  1. IMATINIB MESYLATE [Suspect]
     Indication: CHRONIC MYELOID LEUKAEMIA
     Dosage: 400 MG, QD
     Route: 048
     Dates: start: 20060630
  2. ASPIRIN [Concomitant]
  3. CLOPIDOGREL [Concomitant]
  4. OMEPRAZOLE [Concomitant]
  5. BISOPROLOL [Concomitant]
  6. ATORVASTATIN [Concomitant]

REACTIONS (3)
  - CARDIAC FAILURE CONGESTIVE [None]
  - DYSPNOEA EXERTIONAL [None]
  - RESTRICTIVE CARDIOMYOPATHY [None]
